FAERS Safety Report 15947082 (Version 2)
Quarter: 2019Q2

REPORT INFORMATION
  Report Type: Spontaneous
  Country: US (occurrence: US)
  Receive Date: 20190211
  Receipt Date: 20190613
  Transmission Date: 20190711
  Serious: Yes (Hospitalization, Other)
  Sender: FDA-Public Use
  Company Number: US-PFIZER INC-2019050396

PATIENT
  Age: 69 Year
  Sex: Female
  Weight: 72.52 kg

DRUGS (1)
  1. TIKOSYN [Suspect]
     Active Substance: DOFETILIDE
     Indication: ATRIAL FIBRILLATION
     Dosage: 250 UG, DAILY (TWICE A DAY MORNING AND EVENING ON 12 HOURS INTERVALS)
     Dates: start: 200505

REACTIONS (3)
  - Cerebrovascular accident [Recovered/Resolved]
  - Memory impairment [Not Recovered/Not Resolved]
  - Vitamin B6 increased [Unknown]

NARRATIVE: CASE EVENT DATE: 200505
